FAERS Safety Report 6047895-6 (Version None)
Quarter: 2009Q1

REPORT INFORMATION
  Report Type: 
  Country: None (occurrence: None)
  Receive Date: 20090123
  Receipt Date: 20090114
  Transmission Date: 20090719
  Serious: Yes (Other)
  Sender: FDA-Public Use
  Company Number: US-BAYER-200910946NA

PATIENT
  Sex: Male

DRUGS (2)
  1. LEUKINE [Suspect]
     Indication: PROSTATE CANCER
     Route: 058
     Dates: start: 20080901
  2. VIVELLE-DOT [Concomitant]
     Indication: PROSTATE CANCER
     Dates: start: 20080901

REACTIONS (3)
  - CARDIAC DISORDER [None]
  - PROSTATIC DISORDER [None]
  - TRANSIENT ISCHAEMIC ATTACK [None]
